FAERS Safety Report 6136843-6 (Version None)
Quarter: 2009Q1

REPORT INFORMATION
  Report Type: 
  Country: None (occurrence: None)
  Receive Date: 20090325
  Receipt Date: 20090313
  Transmission Date: 20090719
  Serious: Yes (Hospitalization)
  Sender: FDA-Public Use
  Company Number: 1-17817689

PATIENT
  Age: 73 Year
  Sex: Female
  Weight: 58.0604 kg

DRUGS (7)
  1. WARFARIN SODIUM [Suspect]
     Indication: CEREBROVASCULAR ACCIDENT
     Dosage: 4MG 2D/WK, 9MG 5D/WK, ORAL
     Route: 048
     Dates: start: 20081101
  2. PRAVASTATIN [Suspect]
     Dates: start: 20081101
  3. NEXIUM [Concomitant]
  4. INDERAL [Concomitant]
  5. ASPIRIN [Concomitant]
  6. CALCIUM [Concomitant]
  7. MULTI-VITAMIN [Concomitant]

REACTIONS (5)
  - DIZZINESS POSTURAL [None]
  - IMPAIRED DRIVING ABILITY [None]
  - MYOPATHY [None]
  - NO THERAPEUTIC RESPONSE [None]
  - PAIN IN EXTREMITY [None]
